FAERS Safety Report 15434454 (Version 5)
Quarter: 2018Q4

REPORT INFORMATION
  Report Type: Report from Study
  Country: TW (occurrence: TW)
  Receive Date: 20180927
  Receipt Date: 20181224
  Transmission Date: 20190204
  Serious: Yes (Hospitalization, Other)
  Sender: FDA-Public Use
  Company Number: PHHY2018TW108548

PATIENT
  Age: 54 Year
  Sex: Female

DRUGS (2)
  1. PREDNISOLONE. [Concomitant]
     Active Substance: PREDNISOLONE
     Indication: PRODUCT USED FOR UNKNOWN INDICATION
     Dosage: 5 MG, QOD
     Route: 065
     Dates: start: 20151203
  2. GILENYA [Suspect]
     Active Substance: FINGOLIMOD HYDROCHLORIDE
     Indication: MULTIPLE SCLEROSIS
     Dosage: 0.5 MG, QD
     Route: 048
     Dates: start: 20140210, end: 20180917

REACTIONS (9)
  - Pneumonia cryptococcal [Recovering/Resolving]
  - Mental disorder [Recovered/Resolved]
  - Herpes zoster [Unknown]
  - Asthenia [Unknown]
  - Progressive multifocal leukoencephalopathy [Recovered/Resolved]
  - Headache [Unknown]
  - Cognitive disorder [Recovered/Resolved]
  - Central nervous system lesion [Unknown]
  - Pyrexia [Unknown]

NARRATIVE: CASE EVENT DATE: 20180617
